FAERS Safety Report 16829520 (Version 1)
Quarter: 2019Q3

REPORT INFORMATION
  Report Type: Spontaneous
  Country: FR (occurrence: FR)
  Receive Date: 20190919
  Receipt Date: 20190919
  Transmission Date: 20191005
  Serious: Yes (Hospitalization)
  Sender: FDA-Public Use
  Company Number: FR-JNJFOC-20190922054

PATIENT
  Age: 53 Year
  Sex: Female
  Weight: 62 kg

DRUGS (6)
  1. SPORANOX [Suspect]
     Active Substance: ITRACONAZOLE
     Indication: PNEUMONIA
     Route: 048
     Dates: start: 20190617, end: 20190712
  2. AMBISOME [Concomitant]
     Active Substance: AMPHOTERICIN B
     Indication: PRODUCT USED FOR UNKNOWN INDICATION
     Route: 065
  3. LEVOTHYROX [Concomitant]
     Active Substance: LEVOTHYROXINE
     Indication: PRODUCT USED FOR UNKNOWN INDICATION
     Route: 065
  4. AUGMENTIN [Suspect]
     Active Substance: AMOXICILLIN\CLAVULANATE POTASSIUM
     Indication: C-REACTIVE PROTEIN INCREASED
     Route: 048
     Dates: start: 20190707, end: 20190709
  5. TAZOCILLINE [Suspect]
     Active Substance: PIPERACILLIN SODIUM\TAZOBACTAM SODIUM
     Indication: PNEUMONIA
     Route: 042
     Dates: start: 20190710, end: 20190712
  6. CIPROFLOXACINE KABI [Suspect]
     Active Substance: CIPROFLOXACIN
     Indication: C-REACTIVE PROTEIN INCREASED
     Route: 042
     Dates: start: 20190710, end: 20190712

REACTIONS (4)
  - Rash erythematous [Recovered/Resolved]
  - Product use in unapproved indication [Unknown]
  - Eosinophilia [Recovered/Resolved]
  - Off label use [Unknown]

NARRATIVE: CASE EVENT DATE: 20190617
